FAERS Safety Report 5829435-7 (Version None)
Quarter: 2008Q3

REPORT INFORMATION
  Report Type: 
  Country: None (occurrence: None)
  Receive Date: 20080731
  Receipt Date: 20080709
  Transmission Date: 20090109
  Serious: Yes (Other)
  Sender: FDA-Public Use
  Company Number: US-ABBOTT-08P-163-0462369-00

PATIENT
  Age: 20 Year
  Sex: Male

DRUGS (5)
  1. HUMIRA [Suspect]
     Indication: CROHN'S DISEASE
     Route: 058
     Dates: start: 20060901, end: 20060901
  2. HUMIRA [Suspect]
     Route: 058
  3. HUMIRA [Suspect]
     Route: 058
     Dates: end: 20080429
  4. HUMIRA [Suspect]
     Route: 058
     Dates: start: 20080420, end: 20080601
  5. SOLUTIONS FOR PARENTERAL NUTRITION [Concomitant]
     Indication: MALNUTRITION

REACTIONS (5)
  - ANAEMIA [None]
  - ANORECTAL DISORDER [None]
  - DRUG INEFFECTIVE [None]
  - FISTULA [None]
  - MALNUTRITION [None]
